FAERS Safety Report 10414230 (Version 2)
Quarter: 2014Q3

REPORT INFORMATION
  Report Type: Spontaneous
  Country: GB (occurrence: ES)
  Receive Date: 20140827
  Receipt Date: 20140908
  Transmission Date: 20150326
  Serious: Yes (Other)
  Sender: FDA-Public Use
  Company Number: GB-AMGEN-ESPSP2014065224

PATIENT
  Age: 81 Year
  Sex: Female

DRUGS (1)
  1. ENBREL [Suspect]
     Active Substance: ETANERCEPT
     Indication: PRODUCT USED FOR UNKNOWN INDICATION
     Dosage: UNK
     Route: 065
     Dates: end: 20140808

REACTIONS (4)
  - Lower respiratory tract infection [Unknown]
  - Gait disturbance [Unknown]
  - Stress [Unknown]
  - Peripheral swelling [Recovered/Resolved]

NARRATIVE: CASE EVENT DATE: 2014
